FAERS Safety Report 25848614 (Version 1)
Quarter: 2025Q3

REPORT INFORMATION
  Report Type: Spontaneous
  Country: EU (occurrence: EU)
  Receive Date: 20250925
  Receipt Date: 20250925
  Transmission Date: 20251020
  Serious: Yes (Other)
  Sender: BRECKENRIDGE PHARMACEUTICAL, INC.
  Company Number: EU-Breckenridge Pharmaceutical, Inc.-2185303

PATIENT
  Sex: Female

DRUGS (15)
  1. DULOXETINE [Suspect]
     Active Substance: DULOXETINE
     Indication: Ill-defined disorder
  2. MORPHINE SULFATE [Concomitant]
     Active Substance: MORPHINE SULFATE
  3. LUJA [Concomitant]
  4. LOFRIC SENSE [Concomitant]
  5. INFYNA CHIC [Concomitant]
  6. ACETAMINOPHEN [Concomitant]
     Active Substance: ACETAMINOPHEN
  7. GABAPENTIN [Concomitant]
     Active Substance: GABAPENTIN
  8. FOLIC ACID\IRON\MINERALS\VITAMINS [Concomitant]
     Active Substance: FOLIC ACID\IRON\MINERALS\VITAMINS
  9. ADCAL [Concomitant]
  10. LERCANIDIPINE HYDROCHLORIDE [Concomitant]
     Active Substance: LERCANIDIPINE HYDROCHLORIDE
  11. FEXOFENADINE [Concomitant]
     Active Substance: FEXOFENADINE HYDROCHLORIDE
  12. GLUCOMEN AREO SENSOR [Concomitant]
  13. GLUCOJECT PLUS [Concomitant]
  14. TRIMETHOPRIM [Concomitant]
     Active Substance: TRIMETHOPRIM
  15. HYDROXOCOBALAMIN [Concomitant]
     Active Substance: HYDROXOCOBALAMIN

REACTIONS (9)
  - Eructation [Unknown]
  - Communication disorder [Recovering/Resolving]
  - Hyperhidrosis [Recovering/Resolving]
  - Headache [Recovering/Resolving]
  - Pruritus [Recovering/Resolving]
  - Alexithymia [Unknown]
  - Malaise [Unknown]
  - Insomnia [Unknown]
  - Epistaxis [Unknown]
